FAERS Safety Report 16224351 (Version 2)
Quarter: 2019Q2

REPORT INFORMATION
  Report Type: Spontaneous
  Country: US (occurrence: US)
  Receive Date: 20190422
  Receipt Date: 20190523
  Transmission Date: 20190711
  Serious: No
  Sender: FDA-Public Use
  Company Number: US-CELGENEUS-USA-20190406432

PATIENT
  Age: 51 Year
  Sex: Male

DRUGS (2)
  1. OTEZLA [Suspect]
     Active Substance: APREMILAST
     Indication: PSORIASIS
     Dosage: 60 MILLIGRAM
     Route: 048
     Dates: start: 20190326
  2. OTEZLA [Suspect]
     Active Substance: APREMILAST
     Dosage: 60 MILLIGRAM
     Route: 048
     Dates: start: 20190401

REACTIONS (6)
  - Nausea [Unknown]
  - Feeling jittery [Unknown]
  - Dizziness [Unknown]
  - Adverse drug reaction [Recovered/Resolved]
  - Energy increased [Unknown]
  - Headache [Unknown]

NARRATIVE: CASE EVENT DATE: 2019
